FAERS Safety Report 4774950-0 (Version None)
Quarter: 2005Q3

REPORT INFORMATION
  Report Type: 
  Country: None (occurrence: None)
  Receive Date: 20050920
  Receipt Date: 20050906
  Transmission Date: 20060218
  Serious: Yes (Other)
  Sender: FDA-Public Use
  Company Number: 2005P1000382

PATIENT
  Age: 53 Year
  Sex: Male
  Weight: 86 kg

DRUGS (6)
  1. RETEVASE [Suspect]
     Indication: MYOCARDIAL INFARCTION
     Dosage: IV
     Route: 042
     Dates: start: 20041124
  2. ABCIXIMAB (ABCIXIMAB) [Suspect]
     Indication: MYOCARDIAL INFARCTION
     Dosage: IV
     Route: 042
     Dates: start: 20041124
  3. ASPIRIN [Concomitant]
  4. CLOPIDOGREL [Concomitant]
  5. METOPROLOL [Concomitant]
  6. ORGANIC NITRATES [Concomitant]

REACTIONS (1)
  - CORONARY ARTERY STENOSIS [None]
